FAERS Safety Report 4799715-5 (Version None)
Quarter: 2005Q4

REPORT INFORMATION
  Report Type: 
  Country: None (occurrence: None)
  Receive Date: 20051006
  Receipt Date: 20051006
  Transmission Date: 20060501
  Serious: Yes (Life-Threatening)
  Sender: FDA-Public Use
  Company Number: None

PATIENT
  Age: 64 Year
  Sex: Female

DRUGS (9)
  1. NICARDIPINE HCL [Suspect]
     Indication: HYPERTENSION
     Dosage: 5MG/HR IV
     Route: 042
     Dates: start: 20041030
  2. HYDRALAZINE [Concomitant]
  3. ASPIRIN [Concomitant]
  4. HEPARIN [Concomitant]
  5. FUROSEMIDE [Concomitant]
  6. CLONIDINE [Concomitant]
  7. ATORVASTATIN [Concomitant]
  8. LEVOTHYROXINE [Concomitant]
  9. INSULIN [Concomitant]

REACTIONS (3)
  - GRAND MAL CONVULSION [None]
  - INFUSION RELATED REACTION [None]
  - OXYGEN SATURATION DECREASED [None]
